FAERS Safety Report 17794265 (Version 1)
Quarter: 2020Q2

REPORT INFORMATION
  Report Type: Report from Study
  Country: TW (occurrence: TW)
  Receive Date: 20200515
  Receipt Date: 20200515
  Transmission Date: 20200714
  Serious: Yes (Hospitalization, Other)
  Sender: FDA-Public Use
  Company Number: TW-GILEAD-2019-0435791

PATIENT
  Age: 72 Year
  Sex: Female
  Weight: 44.1 kg

DRUGS (8)
  1. PLAVIX [Concomitant]
     Active Substance: CLOPIDOGREL BISULFATE
     Indication: PLATELET AGGREGATION ABNORMAL
  2. TOUJEO [Concomitant]
     Active Substance: INSULIN GLARGINE
     Indication: DIABETES MELLITUS
  3. PLETAAL [Concomitant]
     Active Substance: CILOSTAZOL
     Indication: PLATELET AGGREGATION ABNORMAL
  4. TENOFOVIR ALAFENAMIDE [Suspect]
     Active Substance: TENOFOVIR ALAFENAMIDE
     Indication: HEPATITIS B
     Dosage: 25 MG, Q1WK
     Route: 048
     Dates: start: 20190802
  5. SOFOSBUVIR W/VELPATASVIR [Suspect]
     Active Substance: SOFOSBUVIR\VELPATASVIR
     Indication: HEPATITIS C
     Dosage: 1 DOSAGE FORM, QD
     Route: 048
     Dates: start: 20190802, end: 20190918
  6. DEXILANT [Concomitant]
     Active Substance: DEXLANSOPRAZOLE
  7. NOVORAPID [Concomitant]
     Active Substance: INSULIN ASPART
     Indication: DIABETES MELLITUS
  8. SUCA [Concomitant]

REACTIONS (5)
  - Sepsis [Not Recovered/Not Resolved]
  - Hypotension [Recovered/Resolved]
  - Acute myocardial infarction [Not Recovered/Not Resolved]
  - Pyrexia [Recovered/Resolved]
  - Cerebrovascular accident [Not Recovered/Not Resolved]

NARRATIVE: CASE EVENT DATE: 20190917
